FAERS Safety Report 4568321-X (Version None)
Quarter: 2005Q1

REPORT INFORMATION
  Report Type: 
  Country: None (occurrence: None)
  Receive Date: 20050202
  Receipt Date: 20031112
  Transmission Date: 20050727
  Serious: Yes (Hospitalization)
  Sender: FDA-Public Use
  Company Number: US-GLAXOSMITHKLINE-A0439354A

PATIENT
  Age: 54 Year
  Sex: Male
  Weight: 95.5 kg

DRUGS (12)
  1. NICORETTE OTC GUM, ORIGINAL [Suspect]
     Dosage: 4MG SEE DOSAGE TEXT
     Route: 002
     Dates: start: 19970101
  2. NICORETTE OTC GUM, ORIGINAL [Suspect]
     Dosage: 2MG UNKNOWN
     Route: 002
     Dates: start: 20030101
  3. METFORMIN HCL [Concomitant]
     Dosage: 500MG TWICE PER DAY
     Route: 048
  4. FELODIPINE [Concomitant]
     Indication: HYPERTENSION
     Dosage: 10MG PER DAY
     Route: 048
  5. LISINOPRIL [Concomitant]
     Indication: HYPERTENSION
     Dosage: 40MG PER DAY
     Route: 048
  6. ASPIRIN [Concomitant]
     Dosage: 1TAB PER DAY
     Route: 048
  7. NOVOLIN N [Concomitant]
  8. HUMALOG [Concomitant]
  9. CLONIDINE [Concomitant]
     Dosage: .2MG TWICE PER DAY
     Route: 048
  10. GLIPIZIDE [Concomitant]
     Dosage: 10MG PER DAY
     Route: 048
  11. HYDROCHLOROTHIAZIDE [Concomitant]
     Indication: HYPERTENSION
     Dosage: 25MG PER DAY
  12. SIMVASTATIN [Concomitant]
     Dosage: 40MG PER DAY

REACTIONS (17)
  - ABNORMAL BEHAVIOUR [None]
  - ANXIETY [None]
  - APHASIA [None]
  - BLOOD POTASSIUM DECREASED [None]
  - BLOOD PRESSURE INCREASED [None]
  - CEREBROVASCULAR ACCIDENT [None]
  - CLUMSINESS [None]
  - DIFFICULTY IN WALKING [None]
  - DIZZINESS [None]
  - DRUG ABUSER [None]
  - DYSGRAPHIA [None]
  - FACIAL PALSY [None]
  - FEELING ABNORMAL [None]
  - HYPOAESTHESIA [None]
  - MENTAL IMPAIRMENT [None]
  - TRANSIENT ISCHAEMIC ATTACK [None]
  - VOMITING [None]
